FAERS Safety Report 13815046 (Version 1)
Quarter: 2017Q3

REPORT INFORMATION
  Report Type: Spontaneous
  Country: US (occurrence: US)
  Receive Date: 20170731
  Receipt Date: 20170731
  Transmission Date: 20171127
  Serious: No
  Sender: FDA-Public Use
  Company Number: US-BAUSCH-BL-2017-005758

PATIENT
  Age: 81 Year
  Sex: Female
  Weight: 63.56 kg

DRUGS (4)
  1. LYRICA [Suspect]
     Active Substance: PREGABALIN
     Indication: NERVE INJURY
     Dosage: 75MG CAPSULE BY MOUTH TWICE A DAY
     Route: 048
     Dates: start: 201608
  2. ASPIRIN. [Concomitant]
     Active Substance: ASPIRIN
     Indication: ARTHRITIS
     Dosage: 650MG TABLET BY MOUTH 2 TO 3 TIMES A DAY AS NEEDED
     Route: 048
  3. EYE ALLERGY RELIEF [Suspect]
     Active Substance: NAPHAZOLINE HYDROCHLORIDE\PHENIRAMINE MALEATE
     Indication: HYPERSENSITIVITY
     Dosage: 1 TO 2 DROPS IN EACH EYE 3 TO 4 TIMES A DAY
     Route: 047
     Dates: start: 201701, end: 20170129
  4. LYRICA [Suspect]
     Active Substance: PREGABALIN
     Dosage: 75 MG CAPSULE ONCE AT NIGHT
     Route: 048
     Dates: start: 20170129

REACTIONS (1)
  - Diplopia [Not Recovered/Not Resolved]

NARRATIVE: CASE EVENT DATE: 201701
